FAERS Safety Report 14373437 (Version 4)
Quarter: 2019Q2

REPORT INFORMATION
  Report Type: Spontaneous
  Country: US (occurrence: US)
  Receive Date: 20180110
  Receipt Date: 20190619
  Transmission Date: 20190711
  Serious: Yes (Other)
  Sender: FDA-Public Use
  Company Number: US-SA-2018SA007454

PATIENT
  Age: 76 Year
  Sex: Female
  Weight: 79.37 kg

DRUGS (4)
  1. PRALUENT [Suspect]
     Active Substance: ALIROCUMAB
     Indication: BLOOD CHOLESTEROL
  2. MELATONIN [Concomitant]
     Active Substance: MELATONIN
     Dosage: UNK UNK,UNK
     Route: 065
  3. VITAMIN D [ERGOCALCIFEROL] [Concomitant]
     Active Substance: ERGOCALCIFEROL
  4. PRALUENT [Suspect]
     Active Substance: ALIROCUMAB
     Indication: CARDIOVASCULAR EVENT PROPHYLAXIS
     Dosage: 75 MG,QOW
     Route: 058
     Dates: start: 20170201

REACTIONS (2)
  - Toe operation [Unknown]
  - Surgery [Recovering/Resolving]

NARRATIVE: CASE EVENT DATE: 20170523
